FAERS Safety Report 17822904 (Version 1)
Quarter: 2020Q2

REPORT INFORMATION
  Report Type: Spontaneous
  Country: CN (occurrence: CN)
  Receive Date: 20200526
  Receipt Date: 20200526
  Transmission Date: 20200714
  Serious: Yes (Hospitalization)
  Sender: FDA-Public Use
  Company Number: CN-ROCHE-2603982

PATIENT
  Age: 41 Year
  Sex: Female
  Weight: 50 kg

DRUGS (5)
  1. DOCETAXEL. [Suspect]
     Active Substance: DOCETAXEL
     Indication: BREAST CANCER
     Route: 041
     Dates: start: 20200424, end: 20200424
  2. DOCETAXEL. [Suspect]
     Active Substance: DOCETAXEL
     Indication: METASTASIS
  3. XELODA [Suspect]
     Active Substance: CAPECITABINE
     Indication: METASTASIS
  4. LORATADINE. [Concomitant]
     Active Substance: LORATADINE
     Route: 048
  5. XELODA [Suspect]
     Active Substance: CAPECITABINE
     Indication: BREAST CANCER
     Dosage: 1 DF=1 TABLET
     Route: 048
     Dates: start: 20200423, end: 20200502

REACTIONS (1)
  - Anaphylactoid reaction [Recovered/Resolved]

NARRATIVE: CASE EVENT DATE: 20200428
